FAERS Safety Report 24439666 (Version 1)
Quarter: 2024Q4

REPORT INFORMATION
  Report Type: Spontaneous
  Country: US (occurrence: None)
  Receive Date: 20241015
  Receipt Date: 20241015
  Transmission Date: 20250114
  Serious: Yes (Other)
  Sender: Public
  Company Number: None

PATIENT
  Age: 89 Year
  Sex: Male

DRUGS (2)
  1. ZYTIGA [Suspect]
     Active Substance: ABIRATERONE ACETATE
  2. PREDNISONE [Suspect]
     Active Substance: PREDNISONE

REACTIONS (4)
  - Hypervolaemia [None]
  - Cardiac failure congestive [None]
  - Acute myocardial infarction [None]
  - Urinary tract infection [None]

NARRATIVE: CASE EVENT DATE: 20241009
